FAERS Safety Report 22354602 (Version 2)
Quarter: 2023Q2

REPORT INFORMATION
  Report Type: Report from Study
  Country: IN (occurrence: IN)
  Receive Date: 20230523
  Receipt Date: 20230529
  Transmission Date: 20230722
  Serious: Yes (Other)
  Sender: FDA-Public Use
  Company Number: IN-UCBSA-2023024929

PATIENT

DRUGS (5)
  1. LEVETIRACETAM [Suspect]
     Active Substance: LEVETIRACETAM
     Indication: Status epilepticus
     Dosage: IV DOSE RANGING FROM 320 MG TO 650 MG
  2. MIDAZOLAM [Suspect]
     Active Substance: MIDAZOLAM
     Indication: Product used for unknown indication
     Dosage: UNK
  3. TOPIRAMATE [Concomitant]
     Active Substance: TOPIRAMATE
     Indication: Product used for unknown indication
     Dosage: 2?5 MG/KG
  4. MAGNESIUM [Concomitant]
     Active Substance: MAGNESIUM
     Indication: Product used for unknown indication
     Dosage: LOADING: 50 MG/KG OVER 30 MIN (MAX 4 G/DOSE)
  5. MAGNESIUM [Concomitant]
     Active Substance: MAGNESIUM
     Dosage: MAINTENANCE: START AT 20 MG/KG/HOUR (RANGE 20?40 MG/KG/HOUR). MAXIMUM INFUSION DOSE: 6 G/HOUR

REACTIONS (3)
  - Epilepsy [Unknown]
  - Drug ineffective [Unknown]
  - Product use in unapproved indication [Unknown]
